FAERS Safety Report 21004452 (Version 6)
Quarter: 2023Q1

REPORT INFORMATION
  Report Type: Spontaneous
  Country: JP (occurrence: JP)
  Receive Date: 20220624
  Receipt Date: 20230309
  Transmission Date: 20230418
  Serious: Yes (Life-Threatening, Hospitalization)
  Sender: FDA-Public Use
  Company Number: JP-ELI_LILLY_AND_COMPANY-JP202206009512

PATIENT
  Age: 46 Year
  Sex: Female
  Weight: 53 kg

DRUGS (13)
  1. VERZENIO [Suspect]
     Active Substance: ABEMACICLIB
     Indication: Breast cancer
     Dosage: 150 MG, BID
     Route: 048
     Dates: start: 20220115, end: 20220609
  2. VERZENIO [Suspect]
     Active Substance: ABEMACICLIB
     Indication: Invasive ductal breast carcinoma
  3. LEUPLIN [Suspect]
     Active Substance: LEUPROLIDE ACETATE
     Indication: Breast cancer
     Dosage: 3.75 MG, MONTHLY (1/M)
     Route: 030
     Dates: start: 20220114, end: 20220318
  4. LEUPLIN [Suspect]
     Active Substance: LEUPROLIDE ACETATE
     Indication: Invasive ductal breast carcinoma
  5. TAMOXIFEN [Suspect]
     Active Substance: TAMOXIFEN
     Indication: Breast cancer
     Dosage: 20 MG, DAILY
     Route: 048
     Dates: start: 20220115, end: 20220609
  6. TAMOXIFEN [Suspect]
     Active Substance: TAMOXIFEN
     Indication: Invasive ductal breast carcinoma
  7. GOSERELIN ACETATE [Suspect]
     Active Substance: GOSERELIN ACETATE
     Indication: Breast cancer
     Dosage: 10.8 MG, OTHER
     Route: 058
     Dates: start: 20220415, end: 20220415
  8. GOSERELIN ACETATE [Suspect]
     Active Substance: GOSERELIN ACETATE
     Indication: Invasive ductal breast carcinoma
  9. MIYA-BM [Concomitant]
     Active Substance: CLOSTRIDIUM BUTYRICUM SPORES STRAIN M-55
     Indication: Prophylaxis against diarrhoea
     Dosage: 3 DOSAGE FORM, DAILY
     Route: 048
     Dates: start: 20220218, end: 20220609
  10. GLYCOSAMINOGLYCANS [Concomitant]
     Active Substance: GLYCOSAMINOGLYCANS
  11. LOPERAMIDE HYDROCHLORIDE [Concomitant]
     Active Substance: LOPERAMIDE HYDROCHLORIDE
  12. ELDECALCITOL [Concomitant]
     Active Substance: ELDECALCITOL
     Indication: Bone density decreased
     Dosage: 0.75 UG, DAILY
     Route: 048
     Dates: start: 20211019, end: 20220609
  13. CARTEOLOL HYDROCHLORIDE\LATANOPROST [Concomitant]
     Active Substance: CARTEOLOL HYDROCHLORIDE\LATANOPROST
     Indication: Glaucoma
     Dosage: UNK
     Route: 047

REACTIONS (1)
  - Acute hepatic failure [Recovering/Resolving]

NARRATIVE: CASE EVENT DATE: 20220607
